FAERS Safety Report 8597755-1 (Version None)
Quarter: 2012Q3

REPORT INFORMATION
  Report Type: 
  Country: None (occurrence: None)
  Receive Date: 20120816
  Receipt Date: 20120813
  Transmission Date: 20120928
  Serious: Yes (Disabling)
  Sender: FDA-Public Use
  Company Number: PHHO2010DE12277

PATIENT
  Sex: Female
  Weight: 65 kg

DRUGS (1)
  1. ZOLEDRONOC ACID [Suspect]
     Indication: BREAST CANCER
     Dosage: 4 MG, UNK
     Route: 065
     Dates: start: 20100111, end: 20100506

REACTIONS (4)
  - ARTHROPATHY [None]
  - ARTHRALGIA [None]
  - OSTEONECROSIS [None]
  - JOINT SWELLING [None]
